FAERS Safety Report 14767256 (Version 1)
Quarter: 2018Q2

REPORT INFORMATION
  Report Type: Spontaneous
  Country: US (occurrence: US)
  Receive Date: 20180417
  Receipt Date: 20180417
  Transmission Date: 20180711
  Serious: Yes (Other)
  Sender: FDA-Public Use
  Company Number: US-PACIRA PHARMACEUTICALS, INC.-2018EXPUS00579

PATIENT
  Sex: Female

DRUGS (1)
  1. EXPAREL [Suspect]
     Active Substance: BUPIVACAINE
     Indication: POSTOPERATIVE ANALGESIA
     Dosage: UNK, SINGLE
     Dates: start: 20180314, end: 20180314

REACTIONS (4)
  - Toxicity to various agents [Unknown]
  - Pleural effusion [Unknown]
  - Hypersensitivity [Unknown]
  - Rash [Unknown]
